FAERS Safety Report 9867691 (Version 2)
Quarter: 2014Q1

REPORT INFORMATION
  Report Type: Spontaneous
  Country: CO (occurrence: CO)
  Receive Date: 20140204
  Receipt Date: 20140204
  Transmission Date: 20141002
  Serious: Yes (Death, Other)
  Sender: FDA-Public Use
  Company Number: CO-PFIZER INC-2013217129

PATIENT
  Age: 79 Year
  Sex: Male

DRUGS (2)
  1. SUTENT [Suspect]
     Indication: RENAL CANCER METASTATIC
     Dosage: 25 MG, 1X/DAY
     Route: 048
     Dates: start: 2010, end: 20131003
  2. SUTENT [Suspect]
     Dosage: 50 MG, 1X/DAY
     Route: 048

REACTIONS (6)
  - Disease progression [Fatal]
  - Renal cancer metastatic [Fatal]
  - Ascites [Unknown]
  - Hypothyroidism [Not Recovered/Not Resolved]
  - Swelling face [Not Recovered/Not Resolved]
  - Oedema [Unknown]
